FAERS Safety Report 9465350 (Version 2)
Quarter: 2013Q3

REPORT INFORMATION
  Report Type: Spontaneous
  Country: US (occurrence: US)
  Receive Date: 20130820
  Receipt Date: 20130925
  Transmission Date: 20140515
  Serious: Yes (Hospitalization)
  Sender: FDA-Public Use
  Company Number: US-BIOGENIDEC-2013BI074496

PATIENT
  Age: 47 Year
  Sex: Male

DRUGS (7)
  1. TYSABRI [Suspect]
     Indication: MULTIPLE SCLEROSIS
     Route: 042
     Dates: start: 20100224, end: 20130528
  2. BACLOFEN [Concomitant]
  3. CLONAZEPAM [Concomitant]
  4. AMPYRA [Concomitant]
     Route: 048
  5. GABAPENTIN [Concomitant]
  6. POTASSIUM CHLORIDE [Concomitant]
  7. SIMVASTATIN [Concomitant]

REACTIONS (3)
  - Multiple sclerosis relapse [Unknown]
  - Fall [Unknown]
  - General physical health deterioration [Unknown]
